FAERS Safety Report 21358715 (Version 4)
Quarter: 2024Q1

REPORT INFORMATION
  Report Type: Spontaneous
  Country: AT (occurrence: AT)
  Receive Date: 20220921
  Receipt Date: 20240314
  Transmission Date: 20240409
  Serious: Yes (Hospitalization)
  Sender: FDA-Public Use
  Company Number: AT-ROCHE-2754571

PATIENT
  Age: 44 Year
  Sex: Female
  Weight: 65 kg

DRUGS (42)
  1. TRASTUZUMAB [Suspect]
     Active Substance: TRASTUZUMAB
     Indication: Breast cancer metastatic
     Dosage: 8 MILLIGRAM/KILOGRAM, MOST RECENT DOSE PRIOR TO AE 26/FEB/2020
     Route: 042
     Dates: start: 20181016, end: 20200226
  2. XGEVA [Suspect]
     Active Substance: DENOSUMAB
     Indication: HER2 positive breast cancer
     Dosage: 120 MILLIGRAM/KILOGRAM, Q4WK
     Route: 058
     Dates: start: 20190326
  3. HERCEPTIN [Suspect]
     Active Substance: TRASTUZUMAB
     Indication: HER2 positive breast cancer
     Dosage: 6 MILLIGRAM/KILOGRAM, Q3WK
     Route: 041
     Dates: start: 20181107, end: 20201115
  4. HERCEPTIN [Suspect]
     Active Substance: TRASTUZUMAB
     Dosage: 8 MILLIGRAM/KILOGRAM, Q3WK
     Route: 041
     Dates: start: 20181016, end: 20181016
  5. LAPATINIB [Suspect]
     Active Substance: LAPATINIB
     Indication: Breast cancer metastatic
     Dosage: 1250 MILLIGRAM, QD, MOST RECENT DOSE PRIOR TO AE 4/AUG/2021
     Route: 048
     Dates: start: 20200715
  6. PERTUZUMAB [Suspect]
     Active Substance: PERTUZUMAB
     Indication: Breast cancer metastatic
     Dosage: 420 MILLIGRAM, Q3WK, MOST RECENT DOSE PRIOR TO AE 26/FEB/2020
     Route: 041
     Dates: start: 20181016
  7. CAPECITABINE [Suspect]
     Active Substance: CAPECITABINE
     Indication: Breast cancer metastatic
     Dosage: 75 MILLIGRAM PER SQUARE METER, Q12H
     Route: 048
     Dates: start: 20200715
  8. ADO-TRASTUZUMAB EMTANSINE [Suspect]
     Active Substance: ADO-TRASTUZUMAB EMTANSINE
     Indication: Breast cancer metastatic
     Dosage: 3.6 MILLIGRAM/KILOGRAM, Q3WK
     Route: 041
     Dates: start: 20200227
  9. PACLITAXEL [Suspect]
     Active Substance: PACLITAXEL
     Indication: Breast cancer metastatic
     Dosage: 138.1 MILLIGRAM/KILOGRAM, QWK, MOST RECENT DOSE PRIOR TO AE 26/FEB/2020
     Route: 041
     Dates: start: 20181017, end: 20200226
  10. PERJETA [Suspect]
     Active Substance: PERTUZUMAB
     Indication: HER2 positive breast cancer
     Dosage: 420 MILLIGRAM, Q3WK
     Route: 042
     Dates: start: 20151107, end: 20200115
  11. PERJETA [Suspect]
     Active Substance: PERTUZUMAB
     Dosage: 840 MILLIGRAM, Q3WK
     Route: 042
     Dates: start: 20181016, end: 20181016
  12. TYKERB [Suspect]
     Active Substance: LAPATINIB DITOSYLATE
     Indication: HER2 positive breast cancer
     Dosage: 1250 MILLIGRAM, QD
     Route: 048
     Dates: start: 20200715, end: 20210804
  13. XELODA [Suspect]
     Active Substance: CAPECITABINE
     Indication: HER2 positive breast cancer
     Dosage: 2000 MILLIGRAM, BID
     Route: 048
     Dates: start: 20200715, end: 202109
  14. KADCYLA [Suspect]
     Active Substance: ADO-TRASTUZUMAB EMTANSINE
     Indication: HER2 positive breast cancer
     Dosage: 3.6 MILLIGRAM/KILOGRAM
     Route: 042
     Dates: start: 20200227, end: 20200227
  15. KADCYLA [Suspect]
     Active Substance: ADO-TRASTUZUMAB EMTANSINE
     Dosage: 3.6 MILLIGRAM/KILOGRAM, Q3WK
     Route: 042
     Dates: start: 20200227, end: 20200314
  16. KADCYLA [Suspect]
     Active Substance: ADO-TRASTUZUMAB EMTANSINE
     Dosage: 3.6 MILLIGRAM/KILOGRAM, Q3WK
     Route: 042
     Dates: start: 20200430, end: 20200703
  17. TAXOL [Suspect]
     Active Substance: PACLITAXEL
     Indication: HER2 positive breast cancer
     Dosage: 75 MILLIGRAM/SQ. METER, QWK, MOST RECENT DOSE PRIOR TO AE 23/OCT/2019
     Route: 042
     Dates: start: 20181017, end: 20191016
  18. TAXOL [Suspect]
     Active Substance: PACLITAXEL
     Dosage: 75 MILLIGRAM/SQ. METER, QWK, MOST RECENT DOSE PRIOR TO AE 23/OCT/2019
     Route: 042
     Dates: start: 20191023, end: 20200219
  19. Paspertin [Concomitant]
     Dosage: UNK
     Dates: start: 20181023
  20. EMEND [Concomitant]
     Active Substance: APREPITANT
     Dosage: UNK
     Dates: start: 20181120
  21. BUPRENORPHINE HYDROCHLORIDE [Concomitant]
     Active Substance: BUPRENORPHINE HYDROCHLORIDE
     Dosage: UNK
     Route: 065
     Dates: start: 20181023
  22. ZOFRAN [Concomitant]
     Active Substance: ONDANSETRON HYDROCHLORIDE
     Dosage: UNK
     Dates: start: 20181023
  23. CAPSAICIN [Concomitant]
     Active Substance: CAPSAICIN
     Indication: General physical health deterioration
     Dosage: UNK
     Dates: start: 20200826, end: 20200917
  24. Paracodin [Concomitant]
     Dosage: UNK
     Dates: start: 20180715
  25. RANITIDINE HYDROCHLORIDE [Concomitant]
     Active Substance: RANITIDINE HYDROCHLORIDE
     Dosage: UNK
     Dates: start: 20181017
  26. LACTULOSE [Concomitant]
     Active Substance: LACTULOSE
     Dosage: UNK
     Dates: start: 20200826
  27. DIPHENHYDRAMINE HYDROCHLORIDE [Concomitant]
     Active Substance: DIPHENHYDRAMINE HYDROCHLORIDE
     Dosage: UNK
  28. ZOFRAN [Concomitant]
     Active Substance: ONDANSETRON HYDROCHLORIDE
     Dosage: UNK
     Dates: start: 20181017
  29. NEURONTIN [Concomitant]
     Active Substance: GABAPENTIN
     Dosage: UNK
     Dates: start: 20181023
  30. Novalgin [Concomitant]
     Dosage: UNK
     Dates: start: 20181023
  31. DEXAMETHASONE [Concomitant]
     Active Substance: DEXAMETHASONE
     Dosage: UNK
     Dates: start: 20181017
  32. Astec [Concomitant]
     Dosage: UNK
     Dates: start: 20181023
  33. POLYETHYLENE GLYCOL 3350\POTASSIUM CHLORIDE\SODIUM BICARBONATE\SODIUM [Concomitant]
     Active Substance: POLYETHYLENE GLYCOL 3350\POTASSIUM CHLORIDE\SODIUM BICARBONATE\SODIUM CHLORIDE
     Dosage: UNK
     Dates: start: 20181023
  34. HYDROMORPHONE HYDROCHLORIDE [Concomitant]
     Active Substance: HYDROMORPHONE HYDROCHLORIDE
     Dosage: UNK
     Dates: start: 20200826
  35. POTASSIUM CHLORIDE [Concomitant]
     Active Substance: POTASSIUM CHLORIDE
  36. SODIUM BICARBONATE [Concomitant]
     Active Substance: SODIUM BICARBONATE
  37. SODIUM CHLORIDE [Concomitant]
     Active Substance: SODIUM CHLORIDE
  38. METOCLOPRAMIDE HYDROCHLORIDE [Concomitant]
     Active Substance: METOCLOPRAMIDE HYDROCHLORIDE
  39. BUPRENORPHINE [Concomitant]
     Active Substance: BUPRENORPHINE
  40. RANITIDINE HYDROCHLORIDE [Concomitant]
     Active Substance: RANITIDINE HYDROCHLORIDE
  41. DIPHENHYDRAMINE HYDROCHLORIDE [Concomitant]
     Active Substance: DIPHENHYDRAMINE HYDROCHLORIDE
  42. LACTULOSE [Concomitant]
     Active Substance: LACTULOSE

REACTIONS (3)
  - General physical health deterioration [Recovered/Resolved]
  - Off label use [Unknown]
  - Ejection fraction decreased [Recovered/Resolved]

NARRATIVE: CASE EVENT DATE: 20190326
